FAERS Safety Report 18810078 (Version 1)
Quarter: 2021Q1

REPORT INFORMATION
  Report Type: Spontaneous
  Country: GB (occurrence: GB)
  Receive Date: 20210129
  Receipt Date: 20210129
  Transmission Date: 20210419
  Serious: Yes (Hospitalization, Other)
  Sender: FDA-Public Use
  Company Number: GB-PFIZER INC-2021058768

PATIENT
  Age: 11 Year
  Sex: Female
  Weight: 48.2 kg

DRUGS (3)
  1. METHOTREXATE SODIUM. [Suspect]
     Active Substance: METHOTREXATE SODIUM
     Indication: OSTEOSARCOMA
     Dosage: UNK (8 G/M2 WAS ADMINISTERED AS A SIX HOUR INFUSION IN NACI 0.9 % WV)
  2. METHOTREXATE SODIUM. [Suspect]
     Active Substance: METHOTREXATE SODIUM
     Dosage: UNK (6G/M2)
  3. SODIUM CHLORIDE. [Concomitant]
     Active Substance: SODIUM CHLORIDE
     Dosage: UNK 0.9% WV

REACTIONS (10)
  - Diarrhoea haemorrhagic [Recovered/Resolved]
  - Toxicity to various agents [Recovered/Resolved]
  - Haematuria [Recovered/Resolved]
  - Nephropathy toxic [Recovered/Resolved]
  - Haematemesis [Recovered/Resolved]
  - Rash follicular [Recovered/Resolved]
  - Oropharyngeal pain [Recovered/Resolved]
  - Epistaxis [Recovered/Resolved]
  - Hypokalaemia [Recovered/Resolved]
  - Mouth ulceration [Recovered/Resolved]
